FAERS Safety Report 17490877 (Version 1)
Quarter: 2020Q1

REPORT INFORMATION
  Report Type: Spontaneous
  Country: US (occurrence: US)
  Receive Date: 20200304
  Receipt Date: 20200304
  Transmission Date: 20200409
  Serious: Yes (Other)
  Sender: FDA-Public Use
  Company Number: US-ABBVIE-20K-163-3297010-00

PATIENT
  Sex: Female

DRUGS (2)
  1. METHOTREXATE. [Suspect]
     Active Substance: METHOTREXATE
     Indication: PRODUCT USED FOR UNKNOWN INDICATION
     Route: 065
  2. HUMIRA [Suspect]
     Active Substance: ADALIMUMAB
     Indication: PRODUCT USED FOR UNKNOWN INDICATION
     Route: 058
     Dates: end: 2017

REACTIONS (9)
  - Arthropathy [Unknown]
  - Trigger finger [Unknown]
  - Systemic lupus erythematosus [Unknown]
  - Drug ineffective [Unknown]
  - Alopecia [Unknown]
  - Carpal tunnel syndrome [Unknown]
  - Lung neoplasm malignant [Unknown]
  - Arthritis [Unknown]
  - Eczema [Unknown]
